FAERS Safety Report 5534276-4 (Version None)
Quarter: 2007Q4

REPORT INFORMATION
  Report Type: 
  Country: None (occurrence: None)
  Receive Date: 20071205
  Receipt Date: 20071128
  Transmission Date: 20080405
  Serious: Yes (Other)
  Sender: FDA-Public Use
  Company Number: US-ROCHE-534004

PATIENT
  Age: 12 Year
  Sex: Female

DRUGS (1)
  1. TAMIFLU [Suspect]
     Dosage: TOOK 1 CAPSULE 3 TIMES PER DAY
     Route: 065
     Dates: start: 20060201

REACTIONS (1)
  - BIPOLAR DISORDER [None]
